FAERS Safety Report 15903140 (Version 1)
Quarter: 2019Q1

REPORT INFORMATION
  Report Type: Spontaneous
  Country: US (occurrence: US)
  Receive Date: 20190202
  Receipt Date: 20190202
  Transmission Date: 20190417
  Serious: No
  Sender: FDA-Public Use
  Company Number: US-TEVA-2019-US-996017

PATIENT
  Sex: Male

DRUGS (1)
  1. NYSTATIN. [Suspect]
     Active Substance: NYSTATIN
     Dosage: 500,000 UNITS, 2 TABLETS, 1 IN MORNING AND 1 IN EVENING
     Dates: start: 20181228

REACTIONS (4)
  - Diarrhoea [Recovered/Resolved]
  - Pyrexia [Unknown]
  - Nausea [Unknown]
  - Vomiting [Unknown]

NARRATIVE: CASE EVENT DATE: 20181228
